FAERS Safety Report 5370841-5 (Version None)
Quarter: 2007Q2

REPORT INFORMATION
  Report Type: 
  Country: None (occurrence: None)
  Receive Date: 20070626
  Receipt Date: 20070625
  Transmission Date: 20071010
  Serious: Yes (Hospitalization)
  Sender: FDA-Public Use
  Company Number: US-BRISTOL-MYERS SQUIBB COMPANY-13651542

PATIENT
  Age: 65 Year
  Sex: Female
  Weight: 61 kg

DRUGS (7)
  1. PACLITAXEL [Suspect]
     Indication: BREAST CANCER
     Route: 042
     Dates: start: 20061127, end: 20061127
  2. SUTENT [Suspect]
     Indication: BREAST CANCER
     Route: 048
     Dates: start: 20061115, end: 20061208
  3. VITAMIN CAP [Concomitant]
     Route: 048
     Dates: start: 20060101
  4. SELENIUM SULFIDE [Concomitant]
     Route: 048
     Dates: start: 20060101
  5. VITAMIN A [Concomitant]
     Route: 048
     Dates: start: 20060101
  6. CAPSAICIN [Concomitant]
     Route: 048
     Dates: start: 20060101
  7. GINKOBIL [Concomitant]
     Route: 048
     Dates: start: 20060101

REACTIONS (4)
  - DYSPNOEA [None]
  - HYPOXIA [None]
  - OEDEMA PERIPHERAL [None]
  - PLEURAL EFFUSION [None]
